FAERS Safety Report 6511478-1 (Version None)
Quarter: 2009Q4

REPORT INFORMATION
  Report Type: 
  Country: None (occurrence: None)
  Receive Date: 20091222
  Receipt Date: 20091217
  Transmission Date: 20100525
  Serious: Yes (Hospitalization)
  Sender: FDA-Public Use
  Company Number: NL-BRISTOL-MYERS SQUIBB COMPANY-14898530

PATIENT
  Age: 34 Year
  Sex: Male

DRUGS (3)
  1. ATAZANAVIR [Suspect]
     Indication: HIV INFECTION
     Dates: start: 20090115
  2. RITONAVIR [Suspect]
     Indication: HIV INFECTION
     Dates: start: 20090115
  3. EMTRICITABINE [Suspect]
     Indication: HIV INFECTION
     Dates: start: 20090115

REACTIONS (2)
  - GLUCOSE-6-PHOSPHATE DEHYDROGENASE DEFICIENCY [None]
  - HAEMOLYTIC ANAEMIA [None]
